FAERS Safety Report 21509709 (Version 4)
Quarter: 2022Q4

REPORT INFORMATION
  Report Type: Report from Study
  Country: JP (occurrence: JP)
  Receive Date: 20221026
  Receipt Date: 20221122
  Transmission Date: 20230113
  Serious: Yes (Hospitalization)
  Sender: FDA-Public Use
  Company Number: JP-PFIZER INC-PV202200088585

PATIENT
  Age: 2 Year
  Sex: Female
  Weight: 11.5 kg

DRUGS (3)
  1. SIROLIMUS [Suspect]
     Active Substance: SIROLIMUS
     Indication: Haemangioma
     Dosage: 1.4 MG,1 D
     Route: 048
     Dates: start: 20211227, end: 20220916
  2. SIROLIMUS [Suspect]
     Active Substance: SIROLIMUS
     Indication: Vascular neoplasm
     Dosage: (1.4 MG,1 D)
     Route: 048
     Dates: start: 20220922
  3. SULFAMETHOXAZOLE\TRIMETHOPRIM [Concomitant]
     Active Substance: SULFAMETHOXAZOLE\TRIMETHOPRIM
     Indication: Infection prophylaxis
     Dosage: 0.3 GM,12 HR
     Route: 048
     Dates: start: 20211227

REACTIONS (1)
  - Cellulitis [Recovered/Resolved]

NARRATIVE: CASE EVENT DATE: 20220912
